FAERS Safety Report 25465397 (Version 1)
Quarter: 2025Q2

REPORT INFORMATION
  Report Type: Spontaneous
  Country: US (occurrence: US)
  Receive Date: 20250623
  Receipt Date: 20250623
  Transmission Date: 20250717
  Serious: Yes (Death, Life-Threatening, Hospitalization, Other)
  Sender: AMGEN
  Company Number: US-AMGEN-USASP2025114440

PATIENT
  Age: 15 Year
  Sex: Male
  Weight: 71.7 kg

DRUGS (6)
  1. RITUXIMAB [Suspect]
     Active Substance: RITUXIMAB
     Indication: Optic neuritis
     Dosage: UNK UNK, QWK (INITIATED FOR 4 WEEKS)
     Route: 065
     Dates: start: 20221028
  2. PREDNISONE [Suspect]
     Active Substance: PREDNISONE
     Indication: Optic neuritis
     Dosage: 60 MILLIGRAM, QD
     Route: 048
     Dates: start: 20220809
  3. PREDNISONE [Suspect]
     Active Substance: PREDNISONE
     Dosage: 5 MILLIGRAM, QWK
     Route: 048
  4. METHYLPREDNISOLONE [Concomitant]
     Active Substance: METHYLPREDNISOLONE
     Dosage: 500 MILLIGRAM, BID
     Route: 040
  5. HUMAN IMMUNOGLOBULIN G [Concomitant]
     Active Substance: HUMAN IMMUNOGLOBULIN G
     Dosage: 2 GRAM PER KILOGRAM, QD
  6. TOCILIZUMAB [Concomitant]
     Active Substance: TOCILIZUMAB
     Route: 040
     Dates: start: 20221228

REACTIONS (15)
  - Death [Fatal]
  - Diabetic ketoacidosis [Unknown]
  - Gastrointestinal haemorrhage [Unknown]
  - Central vision loss [Unknown]
  - Fungal peritonitis [Unknown]
  - Impaired healing [Unknown]
  - Immunodeficiency [Unknown]
  - Fat necrosis [Unknown]
  - Bacteraemia [Unknown]
  - Visual impairment [Unknown]
  - Multiple organ dysfunction syndrome [Unknown]
  - Duodenal perforation [Unknown]
  - Drug effective for unapproved indication [Unknown]
  - Drug ineffective for unapproved indication [Unknown]
  - Off label use [Unknown]

NARRATIVE: CASE EVENT DATE: 20230505
